FAERS Safety Report 24153472 (Version 1)
Quarter: 2024Q3

REPORT INFORMATION
  Report Type: Spontaneous
  Country: US (occurrence: None)
  Receive Date: 20240730
  Receipt Date: 20240730
  Transmission Date: 20241016
  Serious: Yes (Hospitalization)
  Sender: Public
  Company Number: None

PATIENT
  Sex: Male

DRUGS (2)
  1. DEFERASIROX [Suspect]
     Active Substance: DEFERASIROX
     Indication: Blood test abnormal
     Dosage: FREQUENCY : DAILY;?
     Route: 048
     Dates: start: 202103
  2. ENDARI [Concomitant]
     Active Substance: GLUTAMINE

REACTIONS (1)
  - Sickle cell anaemia with crisis [None]
